FAERS Safety Report 7154362-5 (Version None)
Quarter: 2010Q4

REPORT INFORMATION
  Report Type: 
  Country: None (occurrence: None)
  Receive Date: 20101213
  Receipt Date: 20101201
  Transmission Date: 20110411
  Serious: Yes (Other)
  Sender: FDA-Public Use
  Company Number: GB-WATSON-2010-15746

PATIENT
  Age: 13 Year
  Sex: Male
  Weight: 31.2 kg

DRUGS (6)
  1. RISPERDONE [Suspect]
     Indication: ATTENTION DEFICIT/HYPERACTIVITY DISORDER
     Dosage: 1/4 MG, BID
     Route: 048
     Dates: start: 20060601
  2. RISPERDONE [Suspect]
     Indication: AUTISM
  3. EQUASYM [Suspect]
     Indication: ATTENTION DEFICIT/HYPERACTIVITY DISORDER
     Dosage: 50 MG, DAILY
     Route: 048
     Dates: start: 20060901
  4. EQUASYM [Suspect]
     Indication: AUTISM
  5. PRED FORTE [Suspect]
     Indication: PRODUCT USED FOR UNKNOWN INDICATION
     Dosage: UNK
     Route: 031
  6. VEXOL [Suspect]
     Indication: PRODUCT USED FOR UNKNOWN INDICATION
     Dosage: UNK
     Route: 031

REACTIONS (2)
  - BENIGN INTRACRANIAL HYPERTENSION [None]
  - EYE SWELLING [None]
